FAERS Safety Report 16315431 (Version 2)
Quarter: 2019Q2

REPORT INFORMATION
  Report Type: Spontaneous
  Country: IT (occurrence: IT)
  Receive Date: 20190515
  Receipt Date: 20190522
  Transmission Date: 20190711
  Serious: Yes (Hospitalization)
  Sender: FDA-Public Use
  Company Number: IT-UCBSA-2019020749

PATIENT
  Age: 36 Year
  Sex: Female

DRUGS (3)
  1. CIMZIA [Suspect]
     Active Substance: CERTOLIZUMAB PEGOL
     Indication: PSORIATIC ARTHROPATHY
     Dosage: 400 MILLIGRAM, WEEKLY (QW)
     Dates: start: 20181001, end: 20181101
  2. REUMAFLEX [Concomitant]
     Indication: PSORIATIC ARTHROPATHY
     Dosage: 10 MG
     Route: 058
  3. DELTACORTENE [Concomitant]
     Active Substance: PREDNISONE
     Indication: PSORIATIC ARTHROPATHY
     Dosage: 250 MICROGRAM
     Route: 048

REACTIONS (5)
  - Psoriasis [Recovering/Resolving]
  - Off label use [Unknown]
  - Rash pustular [Recovering/Resolving]
  - Erythema [Recovering/Resolving]
  - Pruritus [Recovering/Resolving]
